FAERS Safety Report 9825974 (Version 1)
Quarter: 2013Q4

REPORT INFORMATION
  Report Type: Spontaneous
  Country: US (occurrence: None)
  Receive Date: 20131104
  Receipt Date: 20131104
  Transmission Date: 20140711
  Serious: Yes (Other)
  Sender: FDA-Public Use
  Company Number: 1000046750

PATIENT
  Age: 83 Year
  Sex: Male
  Weight: 65.3 kg

DRUGS (1)
  1. DALIRESP [Suspect]
     Indication: CHRONIC OBSTRUCTIVE PULMONARY DISEASE
     Route: 048
     Dates: start: 201305, end: 20130715

REACTIONS (5)
  - Weight decreased [None]
  - Decreased appetite [None]
  - Anxiety [None]
  - Asthenia [None]
  - Insomnia [None]
